FAERS Safety Report 7726311-X (Version None)
Quarter: 2011Q3

REPORT INFORMATION
  Report Type: 
  Country: None (occurrence: None)
  Receive Date: 20110902
  Receipt Date: 20110831
  Transmission Date: 20111222
  Serious: Yes (Other)
  Sender: FDA-Public Use
  Company Number: BR-ABBOTT-11P-020-0850934-00

PATIENT
  Sex: Female
  Weight: 50 kg

DRUGS (1)
  1. HUMIRA [Suspect]
     Indication: RHEUMATOID ARTHRITIS

REACTIONS (5)
  - URINARY TRACT INFECTION [None]
  - HEPATIC CIRRHOSIS [None]
  - ENTERITIS INFECTIOUS [None]
  - IMMUNODEFICIENCY [None]
  - LIVER DISORDER [None]
